FAERS Safety Report 9154057 (Version 2)
Quarter: 2013Q1

REPORT INFORMATION
  Report Type: Spontaneous
  Country: US (occurrence: None)
  Receive Date: 20130307
  Receipt Date: 20130326
  Transmission Date: 20140127
  Serious: Yes (Death, Other)
  Sender: FDA-Public Use
  Company Number: 2013P1002648

PATIENT
  Age: 31 Year
  Sex: Male

DRUGS (26)
  1. FENTANYL CITRATE [Suspect]
     Indication: ANALGESIC THERAPY
     Route: 042
     Dates: start: 20130126, end: 20130131
  2. MIDAZOLAM [Suspect]
     Indication: SEDATION
     Route: 042
     Dates: start: 20130130, end: 20130131
  3. APAP [Concomitant]
  4. CHLORHEXIDINE [Concomitant]
  5. CISATRACURIUM DRIP [Concomitant]
  6. DIPHENHYDRAMINE [Concomitant]
  7. DOCUSATE [Concomitant]
  8. ENOXAPARIN [Concomitant]
  9. FAMOTIDINE [Concomitant]
  10. FUROSEMIDE [Concomitant]
  11. HYDROCORTISONE [Concomitant]
  12. IBUPROFEN [Concomitant]
  13. INSULIN ASPART SLIDING SCALE [Concomitant]
  14. IOPAMIDOL [Concomitant]
  15. DUONEB [Concomitant]
  16. MAGNESIUM SULFATE [Concomitant]
  17. MICAFUNGIN [Concomitant]
  18. PHENYTOIN [Concomitant]
  19. PIP/TAZO [Concomitant]
  20. KCL [Concomitant]
  21. NEUTRAPHOS [Concomitant]
  22. PROPOFOL DRIP [Concomitant]
  23. SENNA [Concomitant]
  24. SODIUM CHLORIDE [Concomitant]
  25. TDAP [Concomitant]
  26. VANCOMYCIN [Concomitant]

REACTIONS (6)
  - Pyrexia [None]
  - Product contamination [None]
  - Respiratory failure [None]
  - Haemophilus test positive [None]
  - Cardiac arrest [None]
  - Pulseless electrical activity [None]
